FAERS Safety Report 5268346-5 (Version None)
Quarter: 2007Q1

REPORT INFORMATION
  Report Type: 
  Country: None (occurrence: None)
  Receive Date: 20070315
  Receipt Date: 20070315
  Transmission Date: 20070707
  Serious: Yes (Life-Threatening)
  Sender: FDA-Public Use
  Company Number: None

PATIENT
  Age: 59 Year
  Sex: Male
  Weight: 70.3075 kg

DRUGS (1)
  1. AMBIEN [Suspect]
     Dosage: ONE
     Dates: start: 20061103, end: 20061103

REACTIONS (6)
  - ABNORMAL SLEEP-RELATED EVENT [None]
  - ACCIDENT [None]
  - CONFUSIONAL STATE [None]
  - FEAR [None]
  - NASOPHARYNGITIS [None]
  - NIGHTMARE [None]
